FAERS Safety Report 5917684-9 (Version None)
Quarter: 2008Q4

REPORT INFORMATION
  Report Type: 
  Country: None (occurrence: None)
  Receive Date: 20081009
  Receipt Date: 20081002
  Transmission Date: 20090506
  Serious: Yes (Other)
  Sender: FDA-Public Use
  Company Number: 2008AL010969

PATIENT
  Age: 96 Year
  Sex: Female
  Weight: 44.9061 kg

DRUGS (6)
  1. DIGOXIN [Suspect]
     Indication: CARDIAC DISORDER
     Dosage: 0.125MG, DAILY, PO
     Route: 048
     Dates: end: 20080101
  2. TRIAMTERENE [Concomitant]
  3. WARFARIN SODIUM [Concomitant]
  4. PANTOPRAZOLE SODIUM [Concomitant]
  5. VERAPAMIL [Concomitant]
  6. METOPROLOL TARTRATE [Concomitant]

REACTIONS (5)
  - AMNESIA [None]
  - CONTUSION [None]
  - DIZZINESS [None]
  - FALL [None]
  - JOINT INJURY [None]
